FAERS Safety Report 7611596-0 (Version None)
Quarter: 2011Q3

REPORT INFORMATION
  Report Type: 
  Country: None (occurrence: None)
  Receive Date: 20110715
  Receipt Date: 20110629
  Transmission Date: 20111222
  Serious: Yes (Hospitalization)
  Sender: FDA-Public Use
  Company Number: JP-GLAXOSMITHKLINE-B0730122A

PATIENT
  Sex: Female
  Weight: 58 kg

DRUGS (9)
  1. TYKERB [Suspect]
     Indication: BREAST CANCER
     Route: 048
     Dates: start: 20090901, end: 20100608
  2. GLYCEOL [Concomitant]
     Indication: INTRACRANIAL HYPOTENSION
     Route: 042
     Dates: start: 20091027, end: 20091116
  3. GASCON [Concomitant]
     Indication: CONSTIPATION
     Route: 048
     Dates: start: 20090914, end: 20101015
  4. PYDOXAL [Concomitant]
     Indication: PROPHYLAXIS
     Route: 048
     Dates: start: 20091019
  5. HERCEPTIN [Concomitant]
  6. DECADRON [Concomitant]
     Route: 048
     Dates: start: 20091218, end: 20100216
  7. XELODA [Suspect]
     Route: 048
     Dates: start: 20090901, end: 20100608
  8. LEVOTHYROXINE SODIUM [Concomitant]
     Indication: HYPOTHYROIDISM
     Route: 048
  9. DECADRON [Concomitant]
     Indication: INTRACRANIAL HYPOTENSION
     Dates: start: 20091102, end: 20091116

REACTIONS (4)
  - DIARRHOEA [None]
  - CONDITION AGGRAVATED [None]
  - BRAIN OEDEMA [None]
  - PARONYCHIA [None]
